FAERS Safety Report 5920553-1 (Version None)
Quarter: 2008Q4

REPORT INFORMATION
  Report Type: 
  Country: None (occurrence: None)
  Receive Date: 20081015
  Receipt Date: 20081015
  Transmission Date: 20090506
  Serious: Yes (Hospitalization)
  Sender: FDA-Public Use
  Company Number: None

PATIENT
  Sex: Male
  Weight: 142.8 kg

DRUGS (3)
  1. TEMOZOLOMIDE [Suspect]
     Dosage: 2590 MG
  2. THALOMID [Suspect]
     Dosage: 400 MG
  3. ACCUTANE [Suspect]
     Dosage: 400 MG

REACTIONS (5)
  - BACTERAEMIA [None]
  - OEDEMA PERIPHERAL [None]
  - POSTOPERATIVE WOUND INFECTION [None]
  - PULMONARY EMBOLISM [None]
  - RESPIRATORY FAILURE [None]
